FAERS Safety Report 20130460 (Version 1)
Quarter: 2021Q4

REPORT INFORMATION
  Report Type: Spontaneous
  Country: US (occurrence: US)
  Receive Date: 20211130
  Receipt Date: 20211130
  Transmission Date: 20220303
  Serious: Yes (Hospitalization)
  Sender: FDA-Public Use
  Company Number: US-MYLANLABS-2021M1088710

PATIENT
  Age: 54 Year
  Sex: Male

DRUGS (4)
  1. NITROGLYCERIN [Suspect]
     Active Substance: NITROGLYCERIN
     Indication: Blood pressure increased
     Dosage: UNK
     Route: 041
  2. INSULIN GLARGINE [Concomitant]
     Active Substance: INSULIN GLARGINE
     Indication: Type 2 diabetes mellitus
     Dosage: 20 DOSAGE FORM, HS (DOSE: 20 UNITS AT BEDTIME)
     Route: 058
  3. INSULIN LISPRO [Concomitant]
     Active Substance: INSULIN LISPRO
     Indication: Type 2 diabetes mellitus
     Dosage: 6 DOSAGE FORM, TID (DOSE: 6 UNITS 3 TIMES PER DAY)
     Route: 065
  4. INSULIN NOS [Concomitant]
     Active Substance: INSULIN NOS
     Indication: Diabetic ketoacidosis
     Dosage: AS PER PROTOCOL
     Route: 065

REACTIONS (2)
  - Acute myocardial infarction [Unknown]
  - Off label use [Unknown]
